FAERS Safety Report 6337378-8 (Version None)
Quarter: 2009Q3

REPORT INFORMATION
  Report Type: 
  Country: None (occurrence: None)
  Receive Date: 20090902
  Receipt Date: 20080221
  Transmission Date: 20100115
  Serious: Yes (Other)
  Sender: FDA-Public Use
  Company Number: US-ASTRAZENECA-2008UW01167

PATIENT
  Age: 51 Year
  Sex: Male
  Weight: 115.7 kg

DRUGS (9)
  1. SEROQUEL [Suspect]
     Indication: DEPRESSION
     Dosage: 100 MG TO 200 MG
     Route: 048
     Dates: start: 19970101, end: 20001201
  2. SEROQUEL [Suspect]
     Indication: NIGHTMARE
     Dosage: 100 MG TO 200 MG
     Route: 048
     Dates: start: 19970101, end: 20001201
  3. SEROQUEL [Suspect]
     Dosage: 100-400 MG
     Route: 048
     Dates: start: 20070403
  4. SEROQUEL [Suspect]
     Dosage: 100-400 MG
     Route: 048
     Dates: start: 20070403
  5. METFORMIN HCL [Concomitant]
     Indication: DIABETES MELLITUS
     Dosage: 850-1000 MG
     Route: 048
     Dates: start: 20021007
  6. SERTRALINE HCL [Concomitant]
     Indication: POST-TRAUMATIC STRESS DISORDER
     Dosage: 100-200 MG
     Route: 048
     Dates: start: 20000908
  7. SERTRALINE HCL [Concomitant]
     Indication: DEPRESSION
     Dosage: 100-200 MG
     Route: 048
     Dates: start: 20000908
  8. RISPERIDONE [Concomitant]
     Dosage: 1-2 MG
     Route: 048
     Dates: start: 20000908
  9. SILDENAFIL CITRATE [Concomitant]
     Indication: ERECTILE DYSFUNCTION
     Dosage: 150 MG/WEEK
     Route: 048
     Dates: start: 20000925

REACTIONS (4)
  - DIABETES MELLITUS [None]
  - DIABETIC KETOACIDOSIS [None]
  - DIABETIC NEUROPATHY [None]
  - HYPERGLYCAEMIA [None]
